FAERS Safety Report 22341380 (Version 9)
Quarter: 2023Q4

REPORT INFORMATION
  Report Type: Report from Study
  Country: US (occurrence: US)
  Receive Date: 20230518
  Receipt Date: 20231024
  Transmission Date: 20240109
  Serious: Yes (Death, Hospitalization, Other)
  Sender: FDA-Public Use
  Company Number: US-TAIHOP-2023-002977

PATIENT
  Age: 68 Year
  Sex: Male
  Weight: 87.1 kg

DRUGS (16)
  1. LYTGOBI [Suspect]
     Active Substance: FUTIBATINIB
     Indication: Cholangiocarcinoma
     Route: 048
     Dates: start: 20230408
  2. LYTGOBI [Suspect]
     Active Substance: FUTIBATINIB
     Route: 048
  3. LYTGOBI [Suspect]
     Active Substance: FUTIBATINIB
     Route: 048
  4. LYTGOBI [Suspect]
     Active Substance: FUTIBATINIB
     Route: 048
  5. LIPITOR [Concomitant]
     Active Substance: ATORVASTATIN CALCIUM
     Indication: Product used for unknown indication
  6. LASIX [Concomitant]
     Active Substance: FUROSEMIDE
     Indication: Product used for unknown indication
  7. ALDACTONE [Concomitant]
     Active Substance: SPIRONOLACTONE
     Indication: Product used for unknown indication
  8. AMBIEN [Concomitant]
     Active Substance: ZOLPIDEM TARTRATE
     Indication: Product used for unknown indication
  9. VITAMINS [Concomitant]
     Active Substance: VITAMINS
     Indication: Product used for unknown indication
     Dosage: 50+
  10. GABAPENTIN [Concomitant]
     Active Substance: GABAPENTIN
     Indication: Product used for unknown indication
  11. PROTONIX [Concomitant]
     Active Substance: PANTOPRAZOLE SODIUM
     Indication: Product used for unknown indication
  12. ZOFRAN [Concomitant]
     Active Substance: ONDANSETRON HYDROCHLORIDE
     Indication: Product used for unknown indication
  13. BIOTENE NOS [Concomitant]
     Active Substance: CETYLPYRIDINIUM CHLORIDE OR SODIUM FLUORIDE OR SODIUM MONOFLUOROPHOSPHATE OR GLUCOSE OXIDASE\LACTOFE
     Indication: Product used for unknown indication
  14. CLOTRIMAZOLE [Concomitant]
     Active Substance: CLOTRIMAZOLE
     Indication: Product used for unknown indication
  15. LAMISIL [Concomitant]
     Active Substance: TERBINAFINE HYDROCHLORIDE
     Indication: Product used for unknown indication
  16. TEA TREE OIL [Concomitant]
     Active Substance: TEA TREE OIL
     Indication: Product used for unknown indication

REACTIONS (21)
  - Disease progression [Fatal]
  - Peptic ulcer [Recovered/Resolved]
  - Dehydration [Recovering/Resolving]
  - Asthenia [Recovering/Resolving]
  - Puncture site infection [Recovering/Resolving]
  - Neuropathy peripheral [Unknown]
  - Intra-abdominal fluid collection [Unknown]
  - Tooth infection [Recovered/Resolved]
  - Contusion [Not Recovered/Not Resolved]
  - Oedema [Unknown]
  - Nausea [Recovered/Resolved]
  - Dry mouth [Not Recovered/Not Resolved]
  - Fatigue [Not Recovered/Not Resolved]
  - Blood bilirubin increased [Not Recovered/Not Resolved]
  - Stomatitis [Recovering/Resolving]
  - Nail disorder [Recovering/Resolving]
  - Catarrh [Unknown]
  - Therapeutic response unexpected [Unknown]
  - Muscular weakness [Recovering/Resolving]
  - Nail discolouration [Recovering/Resolving]
  - Blood phosphorus increased [Unknown]

NARRATIVE: CASE EVENT DATE: 20230415
